FAERS Safety Report 18568742 (Version 1)
Quarter: 2020Q4

REPORT INFORMATION
  Report Type: Spontaneous
  Country: CN (occurrence: CN)
  Receive Date: 20201202
  Receipt Date: 20201202
  Transmission Date: 20210114
  Serious: Yes (Hospitalization)
  Sender: FDA-Public Use
  Company Number: NVSC2020CN317630

PATIENT
  Age: 39 Year
  Sex: Male
  Weight: 76 kg

DRUGS (1)
  1. VOTALIN [Suspect]
     Active Substance: DICLOFENAC SODIUM
     Indication: GOUT
     Dosage: 75 MG, BID
     Route: 048
     Dates: start: 20201118, end: 20201119

REACTIONS (3)
  - Hyperhidrosis [Recovering/Resolving]
  - Pyrexia [Recovering/Resolving]
  - Abdominal distension [Recovering/Resolving]

NARRATIVE: CASE EVENT DATE: 20201119
